FAERS Safety Report 10068966 (Version 2)
Quarter: 2014Q3

REPORT INFORMATION
  Report Type: Report from Study
  Country: CA (occurrence: CA)
  Receive Date: 20140409
  Receipt Date: 20140806
  Transmission Date: 20150326
  Serious: Yes (Hospitalization, Other)
  Sender: FDA-Public Use
  Company Number: CA-PFIZER INC-2014093967

PATIENT
  Age: 27 Year
  Sex: Female
  Weight: 59.7 kg

DRUGS (4)
  1. DICLECTIN [Suspect]
     Active Substance: DOXYLAMINE\PYRIDOXINE
     Dosage: UNK
     Route: 065
  2. REMICADE [Suspect]
     Active Substance: INFLIXIMAB
     Indication: CROHN^S DISEASE
     Dosage: 300 MG, 1 EVERY 8 WEEKS
     Route: 042
     Dates: start: 20111210
  3. ZOLOFT [Suspect]
     Active Substance: SERTRALINE HYDROCHLORIDE
     Dosage: UNK
     Route: 065
  4. VITAMIN D [Concomitant]
     Active Substance: CHOLECALCIFEROL
     Dosage: UNK

REACTIONS (1)
  - Infected cyst [Recovered/Resolved]

NARRATIVE: CASE EVENT DATE: 2013
